FAERS Safety Report 18854885 (Version 2)
Quarter: 2021Q3

REPORT INFORMATION
  Report Type: Spontaneous
  Country: US (occurrence: US)
  Receive Date: 20210205
  Receipt Date: 20210702
  Transmission Date: 20211014
  Serious: No
  Sender: FDA-Public Use
  Company Number: US-MYLANLABS-2021M1006253

PATIENT
  Sex: Female

DRUGS (7)
  1. CLONIDINE TRANSDERMAL SYSTEM [Suspect]
     Active Substance: CLONIDINE
     Dosage: 0.2 MILLIGRAM, QD (2 PATCHES A WEEK)
     Route: 062
     Dates: start: 20210429
  2. METOPROLOL. [Concomitant]
     Active Substance: METOPROLOL
     Dosage: UNK
  3. CLONIDINE TRANSDERMAL SYSTEM [Suspect]
     Active Substance: CLONIDINE
     Indication: HYPERTENSION
     Dosage: 0.2 MILLIGRAM, QD (2 PATCHES A WEEK)
     Route: 062
  4. VERAPAMIL [Concomitant]
     Active Substance: VERAPAMIL HYDROCHLORIDE
     Dosage: UNK
  5. FAMOTIDINE. [Concomitant]
     Active Substance: FAMOTIDINE
     Dosage: UNK
  6. PRAVASTATIN. [Concomitant]
     Active Substance: PRAVASTATIN
     Dosage: UNK
  7. LOSARTAN. [Concomitant]
     Active Substance: LOSARTAN
     Dosage: UNK

REACTIONS (4)
  - Application site acne [Not Recovered/Not Resolved]
  - Application site pruritus [Not Recovered/Not Resolved]
  - Application site rash [Not Recovered/Not Resolved]
  - Drug ineffective [Unknown]
